FAERS Safety Report 5400270-7 (Version None)
Quarter: 2007Q3

REPORT INFORMATION
  Report Type: 
  Country: None (occurrence: None)
  Receive Date: 20070730
  Receipt Date: 20070718
  Transmission Date: 20080115
  Serious: Yes (Congenital Anomaly)
  Sender: FDA-Public Use
  Company Number: BR-ROCHE-507925

PATIENT
  Sex: Male
  Weight: 5.5 kg

DRUGS (1)
  1. ISOTRETINOIN [Suspect]
     Indication: ACNE
     Dates: start: 20051201, end: 20051201

REACTIONS (2)
  - EXTERNAL EAR DISORDER [None]
  - ILL-DEFINED DISORDER [None]
